FAERS Safety Report 4621235-9 (Version None)
Quarter: 2005Q1

REPORT INFORMATION
  Report Type: 
  Country: None (occurrence: None)
  Receive Date: 20050329
  Receipt Date: 20050317
  Transmission Date: 20050727
  Serious: Yes (Hospitalization)
  Sender: FDA-Public Use
  Company Number: AU-JNJFOC-20050304273

PATIENT
  Age: 35 Year
  Sex: Male

DRUGS (2)
  1. REMICADE [Suspect]
     Route: 042
  2. STEROID NOS [Concomitant]
     Route: 049

REACTIONS (3)
  - INTESTINAL OBSTRUCTION [None]
  - INTESTINAL STENOSIS [None]
  - INTESTINAL ULCER [None]
